FAERS Safety Report 23834728 (Version 2)
Quarter: 2024Q3

REPORT INFORMATION
  Report Type: Spontaneous
  Country: US (occurrence: US)
  Receive Date: 20240509
  Receipt Date: 20240928
  Transmission Date: 20241017
  Serious: Yes (Hospitalization, Other)
  Sender: CSL BEHRING
  Company Number: US-BEH-2024171600

PATIENT
  Age: 71 Year
  Sex: Female

DRUGS (1)
  1. PRIVIGEN [Suspect]
     Active Substance: HUMAN IMMUNOGLOBULIN G
     Indication: Immunodeficiency
     Dosage: 30 G, QMT (EVERY 4 WEEKS)
     Route: 042
     Dates: start: 201908

REACTIONS (3)
  - Pneumonia [Not Recovered/Not Resolved]
  - Chronic obstructive pulmonary disease [Unknown]
  - Therapy interrupted [Unknown]

NARRATIVE: CASE EVENT DATE: 20240401
